FAERS Safety Report 25795780 (Version 1)
Quarter: 2025Q3

REPORT INFORMATION
  Report Type: Report from Study
  Country: CO (occurrence: CO)
  Receive Date: 20250912
  Receipt Date: 20250912
  Transmission Date: 20251020
  Serious: Yes (Hospitalization, Other)
  Sender: UCB
  Company Number: CO-UCBSA-2025007603

PATIENT
  Sex: Female

DRUGS (2)
  1. CERTOLIZUMAB PEGOL [Suspect]
     Active Substance: CERTOLIZUMAB PEGOL
     Indication: Psoriatic arthropathy
     Dosage: 400 MILLIGRAM, EV 15 DAYS
     Route: 058
     Dates: start: 20250124, end: 20250207
  2. CERTOLIZUMAB PEGOL [Suspect]
     Active Substance: CERTOLIZUMAB PEGOL
     Dosage: 400 MILLIGRAM, EV 30 DAYS
     Route: 058
     Dates: start: 2025, end: 20250628

REACTIONS (10)
  - Pneumonia viral [Recovered/Resolved]
  - Pneumonitis [Recovered/Resolved]
  - Malaise [Recovered/Resolved]
  - Headache [Recovered/Resolved]
  - Nausea [Recovered/Resolved]
  - Herpes virus infection [Not Recovered/Not Resolved]
  - Application site pain [Recovered/Resolved]
  - Dizziness [Recovered/Resolved]
  - Off label use [Unknown]
  - Product distribution issue [Unknown]

NARRATIVE: CASE EVENT DATE: 20250101
